FAERS Safety Report 4726569-5 (Version None)
Quarter: 2005Q3

REPORT INFORMATION
  Report Type: 
  Country: None (occurrence: None)
  Receive Date: 20050727
  Receipt Date: 20050309
  Transmission Date: 20060218
  Serious: Yes (Disabling)
  Sender: FDA-Public Use
  Company Number: US-MERCK-0503USA02094

PATIENT
  Age: 67 Year
  Sex: Female
  Weight: 100 kg

DRUGS (8)
  1. VIOXX [Suspect]
     Indication: ARTHRITIS
     Route: 048
     Dates: start: 20031001, end: 20040901
  2. LASIX [Concomitant]
     Route: 065
     Dates: start: 20000101
  3. HYDROCHLOROTHIAZIDE AND TRIAMTERENE [Concomitant]
     Route: 065
     Dates: start: 20000101
  4. LIPITOR [Concomitant]
     Route: 065
     Dates: start: 20000101
  5. PREMPRO [Concomitant]
     Route: 065
     Dates: start: 20000101, end: 20040601
  6. ZYRTEC [Concomitant]
     Route: 065
  7. SYNTHROID [Concomitant]
     Route: 065
  8. TRAZODONE HYDROCHLORIDE [Concomitant]
     Route: 065

REACTIONS (4)
  - CARDIAC MURMUR [None]
  - CEREBROVASCULAR ACCIDENT [None]
  - GOUT [None]
  - POLYTRAUMATISM [None]
